FAERS Safety Report 9401806 (Version 1)
Quarter: 2013Q3

REPORT INFORMATION
  Report Type: Spontaneous
  Country: US (occurrence: US)
  Receive Date: 20130716
  Receipt Date: 20130716
  Transmission Date: 20140515
  Serious: Yes (Hospitalization)
  Sender: FDA-Public Use
  Company Number: US-SANOFI-AVENTIS-2013SA050367

PATIENT
  Age: 89 Year
  Sex: Male
  Weight: 52.16 kg

DRUGS (6)
  1. LANTUS SOLOSTAR [Suspect]
     Indication: TYPE 2 DIABETES MELLITUS
     Dosage: DOSE:26 UNIT(S)
     Route: 051
     Dates: start: 20130101
  2. SOLOSTAR [Suspect]
     Indication: TYPE 2 DIABETES MELLITUS
     Dates: start: 20130101
  3. NATEGLINIDE [Concomitant]
     Route: 065
  4. METFORMIN [Concomitant]
     Indication: DIABETES MELLITUS
  5. AMARYL [Concomitant]
     Indication: DIABETES MELLITUS
     Route: 065
  6. MICRONASE [Concomitant]
     Indication: DIABETES MELLITUS
     Route: 065
     Dates: start: 19980815

REACTIONS (4)
  - Adverse event [Unknown]
  - Blood glucose increased [Unknown]
  - Injection site haemorrhage [Unknown]
  - Injection site pain [Unknown]
